FAERS Safety Report 18527434 (Version 1)
Quarter: 2020Q4

REPORT INFORMATION
  Report Type: Spontaneous
  Country: US (occurrence: US)
  Receive Date: 20201120
  Receipt Date: 20201120
  Transmission Date: 20210114
  Serious: Yes (Hospitalization)
  Sender: FDA-Public Use
  Company Number: US-FRESENIUS MEDICAL CARE RENAL THERAPIES GROUP-FMC-2011-001362

PATIENT
  Age: 75 Year
  Sex: Male
  Weight: 84.5 kg

DRUGS (13)
  1. EPOGEN [Concomitant]
     Active Substance: ERYTHROPOIETIN
  2. CYMBALTA [Concomitant]
     Active Substance: DULOXETINE HYDROCHLORIDE
  3. COLACE [Concomitant]
     Active Substance: DOCUSATE SODIUM
  4. RENA VITE [Concomitant]
  5. TUMS [Concomitant]
     Active Substance: CALCIUM CARBONATE
  6. MIRALAX [Concomitant]
     Active Substance: POLYETHYLENE GLYCOL 3350
  7. DELFLEX WITH DEXTROSE 1.5% LOW MAGNESIUM LOW CALCIUM [Suspect]
     Active Substance: CALCIUM CHLORIDE\DEXTROSE\MAGNESIUM CHLORIDE\SODIUM CHLORIDE\SODIUM LACTATE
     Indication: END STAGE RENAL DISEASE
     Dosage: FILL VOLUME 2500 ML, 4 EXCHANGES, NO LAST FILL, NO DAYTIME EXCHANGE, DWELL TIME 1.5 HOURS, SINCE 29A
     Route: 033
  8. DELFLEX WITH DEXTROSE 2.5% LOW MAGNESIUM LOW CALCIUM [Suspect]
     Active Substance: CALCIUM CHLORIDE\DEXTROSE\MAGNESIUM CHLORIDE\SODIUM CHLORIDE\SODIUM LACTATE
     Indication: END STAGE RENAL DISEASE
     Dosage: FILL VOLUME 2500 ML, 4 EXCHANGES, NO LAST FILL, NO DAYTIME EXCHANGE, DWELL TIME 1.5 HOURS, SINCE 29A
     Route: 033
  9. DULOXETINE. [Concomitant]
     Active Substance: DULOXETINE
  10. METOPROLOL SUCCINATE. [Concomitant]
     Active Substance: METOPROLOL SUCCINATE
  11. DELFLEX WITH DEXTROSE 4.25% LOW MAGNESIUM LOW CALCIUM [Suspect]
     Active Substance: CALCIUM CHLORIDE\DEXTROSE\MAGNESIUM CHLORIDE\SODIUM CHLORIDE\SODIUM LACTATE
     Indication: END STAGE RENAL DISEASE
     Dosage: FILL VOLUME 2500 ML, 4 EXCHANGES, NO LAST FILL, NO DAYTIME EXCHANGE, DWELL TIME 1.5 HOURS, SINCE 29A
     Route: 033
  12. MIRTAZAPINE. [Concomitant]
     Active Substance: MIRTAZAPINE
  13. AMLODIPINE [Concomitant]
     Active Substance: AMLODIPINE BESYLATE

REACTIONS (1)
  - Peritonitis bacterial [Unknown]
